FAERS Safety Report 9112530 (Version 1)
Quarter: 2013Q1

REPORT INFORMATION
  Report Type: Spontaneous
  Country: US (occurrence: US)
  Receive Date: 20130211
  Receipt Date: 20130211
  Transmission Date: 20140127
  Serious: Yes (Other)
  Sender: FDA-Public Use
  Company Number: US-GLAXOSMITHKLINE-A1011244A

PATIENT
  Age: 73 Year
  Sex: Male

DRUGS (2)
  1. NICODERM CQ CLEAR 21MG [Suspect]
     Indication: EX-TOBACCO USER
     Dosage: 21MG UNKNOWN
     Route: 062
     Dates: start: 20130206
  2. NICORETTE [Suspect]
     Indication: EX-TOBACCO USER
     Dosage: 2MG UNKNOWN
     Route: 065

REACTIONS (3)
  - Myocardial infarction [Recovered/Resolved]
  - Rash [Recovered/Resolved]
  - Dyspepsia [Recovered/Resolved]
